FAERS Safety Report 24177299 (Version 1)
Quarter: 2024Q3

REPORT INFORMATION
  Report Type: Report from Study
  Country: CN (occurrence: CN)
  Receive Date: 20240806
  Receipt Date: 20240806
  Transmission Date: 20241017
  Serious: Yes (Other)
  Sender: JOHNSON AND JOHNSON
  Company Number: CN-JNJFOC-20240782131

PATIENT

DRUGS (1)
  1. SIMPONI [Suspect]
     Active Substance: GOLIMUMAB
     Indication: Rheumatoid arthritis
     Route: 058

REACTIONS (29)
  - Basal cell carcinoma [Unknown]
  - Breast cancer [Unknown]
  - Colon cancer [Unknown]
  - Cataract [Unknown]
  - Polyneuropathy [Unknown]
  - Pneumonia cryptococcal [Unknown]
  - Pulmonary tuberculosis [Unknown]
  - Arthritis bacterial [Unknown]
  - Disseminated tuberculosis [Unknown]
  - Pyelonephritis [Unknown]
  - Lymphoma [Unknown]
  - Kidney infection [Unknown]
  - Interstitial lung disease [Unknown]
  - Pneumocystis jirovecii pneumonia [Unknown]
  - Pneumothorax [Unknown]
  - Pneumonia [Unknown]
  - Rheumatoid arthritis [Unknown]
  - Pneumonia bacterial [Unknown]
  - Device deployment issue [Unknown]
  - Device malfunction [Unknown]
  - Device issue [Unknown]
  - Osteoarthritis [Unknown]
  - Inappropriate schedule of product administration [Unknown]
  - Herpes zoster [Unknown]
  - Respiratory tract infection [Unknown]
  - Cellulitis [Unknown]
  - Bronchitis [Unknown]
  - Therapy non-responder [Unknown]
  - Upper respiratory tract infection [Unknown]
